FAERS Safety Report 5568136-X (Version None)
Quarter: 2007Q4

REPORT INFORMATION
  Report Type: 
  Country: None (occurrence: None)
  Receive Date: 20071218
  Receipt Date: 20071218
  Transmission Date: 20080405
  Serious: Yes (Hospitalization)
  Sender: FDA-Public Use
  Company Number: None

PATIENT
  Age: 86 Year
  Sex: Male

DRUGS (2)
  1. FONDAPARINUX [Suspect]
     Indication: ANTICOAGULANT THERAPY
     Dosage: 2.5MG EVERY DAY SQ
     Route: 058
     Dates: start: 20070821, end: 20070828
  2. WARFARIN SODIUM [Suspect]
     Indication: ANTICOAGULANT THERAPY
     Dosage: 5MG EVERY DAY PO
     Route: 048
     Dates: start: 20070825, end: 20070826

REACTIONS (1)
  - HAEMATURIA [None]
